FAERS Safety Report 7109023-5 (Version None)
Quarter: 2010Q4

REPORT INFORMATION
  Report Type: 
  Country: None (occurrence: None)
  Receive Date: 20101117
  Receipt Date: 20101112
  Transmission Date: 20110411
  Serious: Yes (Other)
  Sender: FDA-Public Use
  Company Number: US-ELI_LILLY_AND_COMPANY-US201011003649

PATIENT
  Sex: Male

DRUGS (1)
  1. TADALAFIL [Suspect]
     Indication: ERECTILE DYSFUNCTION
     Dosage: 20 MG, UNK

REACTIONS (5)
  - BLADDER DILATATION [None]
  - DRUG INEFFECTIVE [None]
  - PROSTATOMEGALY [None]
  - URINARY RETENTION [None]
  - VISUAL ACUITY REDUCED [None]
